FAERS Safety Report 18636876 (Version 1)
Quarter: 2020Q4

REPORT INFORMATION
  Report Type: Report from Study
  Country: US (occurrence: US)
  Receive Date: 20201218
  Receipt Date: 20201218
  Transmission Date: 20210114
  Serious: Yes (Other)
  Sender: FDA-Public Use
  Company Number: US-BAYER-2020-231131

PATIENT
  Age: 82 Year
  Sex: Female

DRUGS (1)
  1. STIVARGA [Suspect]
     Active Substance: REGORAFENIB
     Indication: HEPATITIS B
     Dosage: 160 MG DAILY DAYS 1-21 EVERY 28 DAYS
     Route: 048
     Dates: start: 20200923

REACTIONS (9)
  - Tongue dry [Not Recovered/Not Resolved]
  - Off label use [None]
  - Adverse drug reaction [None]
  - Rash [None]
  - Mobility decreased [None]
  - Blister [Not Recovered/Not Resolved]
  - Product use in unapproved indication [None]
  - Dysphonia [Not Recovered/Not Resolved]
  - Pain of skin [Not Recovered/Not Resolved]

NARRATIVE: CASE EVENT DATE: 20200923
